FAERS Safety Report 8359140-7 (Version None)
Quarter: 2012Q2

REPORT INFORMATION
  Report Type: 
  Country: None (occurrence: None)
  Receive Date: 20120511
  Receipt Date: 20120430
  Transmission Date: 20120825
  Serious: Yes (Death)
  Sender: FDA-Public Use
  Company Number: IMP_05874_2012

PATIENT
  Age: 51 Year
  Sex: Male

DRUGS (1)
  1. DIGOXIN [Suspect]
     Indication: PRODUCT USED FOR UNKNOWN INDICATION
     Dosage: 20 DF, 1X NOT THE PRESCRIBED DOSE, ORAL
     Route: 048

REACTIONS (6)
  - COMPLETED SUICIDE [None]
  - SPLEEN CONGESTION [None]
  - TOXICITY TO VARIOUS AGENTS [None]
  - OVERDOSE [None]
  - PULMONARY CONGESTION [None]
  - LOSS OF CONSCIOUSNESS [None]
